FAERS Safety Report 7395992-5 (Version None)
Quarter: 2011Q2

REPORT INFORMATION
  Report Type: 
  Country: None (occurrence: None)
  Receive Date: 20110406
  Receipt Date: 20110404
  Transmission Date: 20111010
  Serious: Yes (Death, Other)
  Sender: FDA-Public Use
  Company Number: US-SHIRE-SPV1-2011-00558

PATIENT
  Age: 13 Year
  Sex: Male

DRUGS (6)
  1. INTUNIV [Suspect]
     Indication: ATTENTION DEFICIT/HYPERACTIVITY DISORDER
     Dosage: 1 MG, 1X/DAY:QD
     Route: 048
     Dates: start: 20091201, end: 20091201
  2. INTUNIV [Suspect]
     Dosage: 3 MG, 1X/DAY:QD
     Route: 048
     Dates: start: 20110301, end: 20110301
  3. INTUNIV [Suspect]
     Dosage: 2 MG, 1X/DAY:QD
     Route: 048
     Dates: start: 20091201, end: 20091201
  4. INTUNIV [Suspect]
     Dosage: 4 MG, 1X/DAY:QD
     Route: 048
     Dates: start: 20100101, end: 20110301
  5. INTUNIV [Suspect]
     Dosage: 2 MG, 1X/DAY:QD
     Route: 048
     Dates: start: 20110301
  6. INTUNIV [Suspect]
     Dosage: 3 MG, 1X/DAY:QD
     Route: 048
     Dates: start: 20091201, end: 20100101

REACTIONS (4)
  - DRUG EFFECT DECREASED [None]
  - COMPLETED SUICIDE [None]
  - AFFECTIVE DISORDER [None]
  - CONDITION AGGRAVATED [None]
